FAERS Safety Report 8278040-4 (Version None)
Quarter: 2012Q2

REPORT INFORMATION
  Report Type: 
  Country: None (occurrence: None)
  Receive Date: 20120412
  Receipt Date: 20120330
  Transmission Date: 20120825
  Serious: Yes (Hospitalization, Other)
  Sender: FDA-Public Use
  Company Number: AU-ROCHE-802698

PATIENT
  Age: 58 Year
  Sex: Male
  Weight: 134 kg

DRUGS (12)
  1. VEMURAFENIB [Suspect]
     Dosage: DATE OF LAST DOSE PRIOR TO SAE WAS:15 SEP 2011
     Route: 048
  2. NEXIUM [Concomitant]
  3. NAPROXEN [Concomitant]
     Dates: start: 20000101
  4. DEXAMETHASONE 0.5MG TAB [Suspect]
     Dates: start: 20111004, end: 20111023
  5. DEXAMETHASONE 0.5MG TAB [Suspect]
     Dates: start: 20111129, end: 20111205
  6. DEXAMETHASONE 0.5MG TAB [Suspect]
     Indication: PRODUCT USED FOR UNKNOWN INDICATION
     Dates: start: 20110916, end: 20110928
  7. DEXAMETHASONE 1.5MG TAB [Suspect]
     Dates: start: 20111122, end: 20111128
  8. DEXAMETHASONE 0.5MG TAB [Suspect]
     Dates: start: 20111024, end: 20111031
  9. PERINDOPRIL ERBUMINE [Concomitant]
  10. VEMURAFENIB [Suspect]
     Indication: METASTATIC MALIGNANT MELANOMA
     Dosage: DATE OF LAST DOSE PRIOR TO SAE WAS:15 SEP 2011
     Route: 048
     Dates: start: 20110804, end: 20110916
  11. DEXAMETHASONE 0.5MG TAB [Suspect]
     Dates: start: 20110929, end: 20111003
  12. DEXAMETHASONE 0.5MG TAB [Suspect]
     Dates: start: 20111101, end: 20111121

REACTIONS (3)
  - DIABETES MELLITUS [None]
  - HEADACHE [None]
  - HEPATITIS [None]
